FAERS Safety Report 5069992-4 (Version None)
Quarter: 2006Q3

REPORT INFORMATION
  Report Type: 
  Country: None (occurrence: None)
  Receive Date: 20060731
  Receipt Date: 20060718
  Transmission Date: 20061208
  Serious: Yes (Other)
  Sender: FDA-Public Use
  Company Number: CHNY2006BR02122

PATIENT
  Age: 65 Year
  Sex: Female

DRUGS (5)
  1. TRIMEDAL (NCH)(VITAMIN C, TROXERUTIN, ACETAMINOPHEN (PARACETAMOL) PHEN [Suspect]
     Indication: INFLUENZA
     Dosage: 1 DF, Q8H, ORAL
     Route: 048
     Dates: end: 20060713
  2. BEROTEC [Suspect]
  3. ATENOLOL W/HYDROCHLOROTHIAZIDE (ATENOLOL HYDROCHLOROTHIAZIDE) [Concomitant]
  4. XALATAN [Concomitant]
  5. MUCOSOLVAN (AMBROXAL HYDROCHLORIDE) [Suspect]

REACTIONS (8)
  - DIZZINESS [None]
  - GASTROENTERITIS ROTAVIRUS [None]
  - HEADACHE [None]
  - HYPERTENSION [None]
  - IMMUNOSUPPRESSION [None]
  - RETCHING [None]
  - TACHYCARDIA [None]
  - TREMOR [None]
